FAERS Safety Report 6355882-3 (Version None)
Quarter: 2009Q3

REPORT INFORMATION
  Report Type: 
  Country: None (occurrence: None)
  Receive Date: 20090910
  Receipt Date: 20090910
  Transmission Date: 20100115
  Serious: No
  Sender: FDA-Public Use
  Company Number: None

PATIENT
  Sex: Male
  Weight: 39.4629 kg

DRUGS (1)
  1. FLONASE [Suspect]
     Indication: MULTIPLE ALLERGIES
     Dosage: 1 SPRAY EA NOSTRIL DAILY NASAL
     Route: 045
     Dates: start: 20060801

REACTIONS (2)
  - PRODUCT SUBSTITUTION ISSUE [None]
  - RASH [None]
